FAERS Safety Report 7949180-1 (Version None)
Quarter: 2011Q4

REPORT INFORMATION
  Report Type: 
  Country: None (occurrence: None)
  Receive Date: 20111130
  Receipt Date: 20111118
  Transmission Date: 20120403
  Serious: Yes (Other)
  Sender: FDA-Public Use
  Company Number: US-SANOFI-AVENTIS-2011SA073289

PATIENT
  Age: 71 Year
  Sex: Female
  Weight: 54 kg

DRUGS (12)
  1. XANAX [Concomitant]
     Dosage: DOSE:.25 UNIT(S)
  2. POTASSIUM ACETATE [Concomitant]
  3. COENZYME Q10 [Concomitant]
  4. CRESTOR [Concomitant]
     Dosage: DOSE:10 UNIT(S)
  5. MULTI-VITAMINS [Concomitant]
  6. VITAMIN B-12 [Concomitant]
  7. CALCIUM [Concomitant]
  8. ALLEGRA [Suspect]
     Route: 048
     Dates: start: 20110101, end: 20111101
  9. GARLIC [Concomitant]
  10. DONEPEZIL HCL [Concomitant]
     Dates: start: 20111001
  11. ASCORBIC ACID [Concomitant]
  12. NIACIN [Concomitant]

REACTIONS (4)
  - RESPIRATORY TRACT CONGESTION [None]
  - GASTROINTESTINAL DISORDER [None]
  - DRUG INEFFECTIVE [None]
  - RHINORRHOEA [None]
